FAERS Safety Report 8834423 (Version 1)
Quarter: 2012Q4

REPORT INFORMATION
  Report Type: Spontaneous
  Country: CA (occurrence: None)
  Receive Date: 20120912
  Receipt Date: 20120912
  Transmission Date: 20130627
  Serious: Yes (Other)
  Sender: FDA-Public Use
  Company Number: AECAN201200436

PATIENT
  Age: 67 Year
  Sex: Male

DRUGS (1)
  1. IGIVNEX [Suspect]
     Indication: DRUG USE FOR UNKNOWN INDICATION
     Route: 042
     Dates: start: 20120726, end: 20120726

REACTIONS (2)
  - Shock [None]
  - Angioedema [None]
